FAERS Safety Report 6199633-4 (Version None)
Quarter: 2009Q2

REPORT INFORMATION
  Report Type: 
  Country: None (occurrence: None)
  Receive Date: 20090522
  Receipt Date: 20090310
  Transmission Date: 20091009
  Serious: No
  Sender: FDA-Public Use
  Company Number: A0772783A

PATIENT

DRUGS (1)
  1. BACTROBAN [Suspect]
     Indication: RASH
     Route: 061

REACTIONS (1)
  - HYPERSENSITIVITY [None]
